FAERS Safety Report 10216070 (Version 1)
Quarter: 2014Q2

REPORT INFORMATION
  Report Type: Spontaneous
  Country: US (occurrence: None)
  Receive Date: 20140603
  Receipt Date: 20140603
  Transmission Date: 20141212
  Serious: Yes (Life-Threatening, Hospitalization)
  Sender: FDA-Public Use
  Company Number: None

PATIENT
  Age: 60 Year
  Sex: Female
  Weight: 57.7 kg

DRUGS (22)
  1. BOTULINUM TOXIN TYPE A [Suspect]
     Indication: MIGRAINE
     Dosage: 155 U?1 X 3MOS?IM
     Route: 030
     Dates: start: 20130716, end: 20140430
  2. TOPIRAMATE [Suspect]
     Indication: MIGRAINE
     Route: 048
     Dates: start: 20130716, end: 20140420
  3. COREG [Concomitant]
  4. HCTZ [Concomitant]
  5. IBUPROFEN [Concomitant]
  6. VITAMIN B12 [Concomitant]
  7. MULTIVITAMIN [Concomitant]
  8. ZANTAC [Concomitant]
  9. ZYRTEC [Concomitant]
  10. PANTOPRAZOLE [Concomitant]
  11. LOVASTATIN [Concomitant]
  12. AMLODIPINE [Concomitant]
  13. GEMFIBROZIL [Concomitant]
  14. ACYCLOVIR [Concomitant]
  15. CELEBREX [Concomitant]
  16. VITAMIN D3 [Concomitant]
  17. VITAMIN B COMPLEX [Concomitant]
  18. FIBER [Concomitant]
  19. BABY ASPIRIN [Concomitant]
  20. EXECRIN [Concomitant]
  21. PERCOCET [Concomitant]
  22. SYMBICORT [Concomitant]

REACTIONS (6)
  - Fall [None]
  - Septic shock [None]
  - Renal failure [None]
  - Escherichia test positive [None]
  - Dialysis [None]
  - Cardiac arrest [None]
